FAERS Safety Report 9563503 (Version 1)
Quarter: 2013Q1

REPORT INFORMATION
  Report Type: Spontaneous
  Country: US (occurrence: None)
  Receive Date: 20121227
  Receipt Date: 20121227
  Transmission Date: 20140127
  Serious: Yes (Death)
  Sender: FDA-Public Use
  Company Number: PHEH2012US004691

PATIENT
  Age: 85 Year
  Sex: Male

DRUGS (3)
  1. EXJADE (*CGP 72670*) [Suspect]
     Indication: APLASIA PURE RED CELL
     Route: 048
     Dates: start: 20111205
  2. EXJADE (*CGP 72670*) [Suspect]
     Indication: THROMBOCYTOPENIA
     Route: 048
     Dates: start: 20111205
  3. EXJADE (*CGP 72670*) [Suspect]
     Indication: POLYCYTHAEMIA
     Route: 048
     Dates: start: 20111205

REACTIONS (1)
  - Renal failure acute [None]
